FAERS Safety Report 5015334-X (Version None)
Quarter: 2006Q2

REPORT INFORMATION
  Report Type: 
  Country: None (occurrence: None)
  Receive Date: 20060530
  Receipt Date: 20060530
  Transmission Date: 20061013
  Serious: Yes (Hospitalization)
  Sender: FDA-Public Use
  Company Number: None

PATIENT
  Age: 60 Year
  Sex: Male
  Weight: 53.0709 kg

DRUGS (1)
  1. CYCLOSPORINE [Suspect]
     Dosage: 200 MG BID PO
     Route: 048
     Dates: start: 20060130, end: 20060427

REACTIONS (3)
  - DRUG TOXICITY [None]
  - HYPERKALAEMIA [None]
  - RENAL FAILURE ACUTE [None]
